FAERS Safety Report 25055993 (Version 3)
Quarter: 2025Q3

REPORT INFORMATION
  Report Type: Report from Study
  Country: US (occurrence: US)
  Receive Date: 20250309
  Receipt Date: 20250803
  Transmission Date: 20251021
  Serious: Yes (Other)
  Sender: ALEXION PHARMACEUTICALS
  Company Number: US-AstraZeneca-CH-00819523A

PATIENT
  Sex: Male

DRUGS (1)
  1. DAPAGLIFLOZIN [Suspect]
     Active Substance: DAPAGLIFLOZIN
     Indication: Diabetes mellitus
     Dosage: 30 MILLIGRAM, QD
     Route: 065

REACTIONS (4)
  - Illness [Unknown]
  - Gait disturbance [Unknown]
  - Back disorder [Unknown]
  - Neuropathy peripheral [Unknown]
